FAERS Safety Report 4893858-3 (Version None)
Quarter: 2006Q1

REPORT INFORMATION
  Report Type: 
  Country: None (occurrence: None)
  Receive Date: 20060127
  Receipt Date: 20041220
  Transmission Date: 20060701
  Serious: No
  Sender: FDA-Public Use
  Company Number: US-GLAXOSMITHKLINE-A0538017A

PATIENT
  Age: 72 Year
  Sex: Female

DRUGS (9)
  1. WELLBUTRIN [Suspect]
     Indication: DEPRESSION
     Dosage: 100MG THREE TIMES PER DAY
     Route: 048
     Dates: start: 20040101
  2. DEPAKOTE [Concomitant]
  3. ZOLOFT [Concomitant]
  4. XANAX [Concomitant]
  5. POTASSIUM [Concomitant]
  6. ASCORBIC ACID [Concomitant]
  7. THYROID TAB [Concomitant]
  8. TRAZODONE [Concomitant]
  9. KLONOPIN [Concomitant]

REACTIONS (1)
  - DRUG INEFFECTIVE [None]
